FAERS Safety Report 20459528 (Version 2)
Quarter: 2022Q2

REPORT INFORMATION
  Report Type: Spontaneous
  Country: JP (occurrence: JP)
  Receive Date: 20220211
  Receipt Date: 20220509
  Transmission Date: 20220720
  Serious: Yes (Other)
  Sender: FDA-Public Use
  Company Number: JP-MLMSERVICE-20220127-3341839-1

PATIENT
  Age: 54 Year
  Sex: Male

DRUGS (3)
  1. DOCETAXEL [Suspect]
     Active Substance: DOCETAXEL
     Indication: Lung adenocarcinoma stage IV
     Dosage: CUMULATIVE DOSE: 3 CYCLICAL
  2. RAMUCIRUMAB [Suspect]
     Active Substance: RAMUCIRUMAB
     Indication: Lung adenocarcinoma stage IV
     Dosage: CUMULATIVE DOSE : 3 CYCLICAL
  3. PEMBROLIZUMAB [Suspect]
     Active Substance: PEMBROLIZUMAB
     Indication: Lung adenocarcinoma stage IV
     Dosage: 200 MG/BODY

REACTIONS (2)
  - Systemic scleroderma [Recovered/Resolved]
  - Diarrhoea [Recovered/Resolved]
